FAERS Safety Report 16421141 (Version 3)
Quarter: 2019Q4

REPORT INFORMATION
  Report Type: Report from Study
  Country: ES (occurrence: ES)
  Receive Date: 20190612
  Receipt Date: 20191001
  Transmission Date: 20200122
  Serious: Yes (Death, Hospitalization)
  Sender: FDA-Public Use
  Company Number: ES-BAYER-2019-074437

PATIENT
  Sex: Male

DRUGS (22)
  1. LACTULOSE. [Concomitant]
     Active Substance: LACTULOSE
     Dosage: 15 ML, PRN
     Dates: start: 20190611, end: 20190618
  2. ALBUMIN [Concomitant]
     Active Substance: ALBUMIN HUMAN
     Indication: ACUTE KIDNEY INJURY
     Dosage: 20 MG, TID
     Dates: start: 20190607, end: 20190614
  3. SALBUTAMOL [Concomitant]
     Active Substance: ALBUTEROL
     Indication: ACUTE KIDNEY INJURY
     Dosage: 2 AMPULE ONCE
     Dates: start: 20190607, end: 20190607
  4. GLUCONATE DE CALCIUM [Concomitant]
     Active Substance: CALCIUM GLUCONATE
     Indication: ACUTE KIDNEY INJURY
     Dosage: 1 AMPULE THREE TIMES PER DAY
     Dates: start: 20190607, end: 20190609
  5. SIMVASTATIN. [Concomitant]
     Active Substance: SIMVASTATIN
     Indication: BLOOD CHOLESTEROL INCREASED
     Dosage: 10 MG DAILY
  6. PHYSIOLOGICAL SALINE SOLUTION [Concomitant]
     Active Substance: SODIUM CHLORIDE
     Indication: LARGE INTESTINAL HAEMORRHAGE
     Dosage: 500 ML, PRN
     Dates: start: 20190618, end: 20190618
  7. PROPRANOLOL [Concomitant]
     Active Substance: PROPRANOLOL HYDROCHLORIDE
     Indication: VARICES OESOPHAGEAL
     Dosage: 80 MG, QD
  8. PROPRANOLOL [Concomitant]
     Active Substance: PROPRANOLOL HYDROCHLORIDE
     Indication: VARICES OESOPHAGEAL
     Dosage: 70 MG, QD
  9. FUROSEMIDE. [Concomitant]
     Active Substance: FUROSEMIDE
     Indication: ACUTE KIDNEY INJURY
     Dosage: 40 MG, ONCE
     Dates: start: 20190607, end: 20190613
  10. STIVARGA [Suspect]
     Active Substance: REGORAFENIB
     Dosage: 160 MG DAILY
     Dates: start: 20190323, end: 201904
  11. STIVARGA [Suspect]
     Active Substance: REGORAFENIB
     Dosage: DAILY DOSE 120 MG
     Dates: start: 20190405, end: 20190522
  12. TAMSULOSINE [TAMSULOSIN] [Concomitant]
     Active Substance: TAMSULOSIN
     Indication: BENIGN PROSTATIC HYPERPLASIA
     Dosage: 0.4 MG, QD
  13. RIFAXIMINE [Concomitant]
     Active Substance: RIFAXIMIN
     Dosage: 400 MG EVERY EIGHT HOURS
     Dates: start: 20190401
  14. LACTULOSE. [Concomitant]
     Active Substance: LACTULOSE
     Dosage: 15 ML, PRN
     Dates: start: 20190407, end: 20190618
  15. MICONAZOL [MICONAZOLE NITRATE] [Concomitant]
     Indication: FUNGAL SKIN INFECTION
     Dosage: 1 G, BID
     Dates: start: 20190408
  16. HYDROXYZINE [Concomitant]
     Active Substance: HYDROXYZINE HYDROCHLORIDE
     Indication: PRURITUS
     Dosage: 1 CAPSULE DAILY
     Dates: start: 20190523, end: 20190607
  17. METFORMIN [Concomitant]
     Active Substance: METFORMIN HYDROCHLORIDE
     Indication: TYPE 2 DIABETES MELLITUS
     Dosage: 850 MG, BID
     Dates: end: 20190607
  18. VILDAGLIPTINE [Concomitant]
     Active Substance: VILDAGLIPTIN
     Indication: TYPE 2 DIABETES MELLITUS
  19. BICARBONATE [Concomitant]
     Active Substance: SODIUM BICARBONATE
     Indication: ACUTE KIDNEY INJURY
     Dosage: 500 ML, QD
     Dates: start: 20190607, end: 20190609
  20. STIVARGA [Suspect]
     Active Substance: REGORAFENIB
     Dosage: 80 MG DAILY
     Dates: start: 20190523, end: 20190607
  21. LOPERAMIDE [Concomitant]
     Active Substance: LOPERAMIDE
     Indication: DIARRHOEA
     Dosage: 4 MG
     Dates: start: 20190405, end: 20190407
  22. INSULINE ACTRAPID [Concomitant]
     Indication: ACUTE KIDNEY INJURY
     Dosage: UNK
     Dates: start: 20190607, end: 20190610

REACTIONS (3)
  - Encephalopathy [Recovered/Resolved with Sequelae]
  - Urinary tract infection [Recovered/Resolved]
  - Gastroenteritis [Recovered/Resolved]

NARRATIVE: CASE EVENT DATE: 20190407
